FAERS Safety Report 9503616 (Version 3)
Quarter: 2013Q4

REPORT INFORMATION
  Report Type: Report from Study
  Country: AT (occurrence: AT)
  Receive Date: 20130906
  Receipt Date: 20131018
  Transmission Date: 20140711
  Serious: Yes (Hospitalization)
  Sender: FDA-Public Use
  Company Number: AT-AMGEN-AUTCT2013059080

PATIENT
  Age: 67 Year
  Sex: Female

DRUGS (4)
  1. DENOSUMAB [Suspect]
     Indication: BONE DENSITY DECREASED
     Dosage: 60 MG, UNK
     Route: 058
     Dates: start: 20110221
  2. PANTOPRAZOL [Concomitant]
     Dosage: 20 MG, QD
     Route: 048
  3. ARIMIDEX [Concomitant]
     Dosage: 1 MG, QD
     Route: 048
  4. OLEOVIT                            /00056001/ [Concomitant]
     Dosage: 30 DROPS, QWK
     Route: 048

REACTIONS (2)
  - Post procedural infection [Unknown]
  - Foot deformity [Recovering/Resolving]
